FAERS Safety Report 17875310 (Version 1)
Quarter: 2020Q2

REPORT INFORMATION
  Report Type: Spontaneous
  Country: US (occurrence: US)
  Receive Date: 20200608
  Receipt Date: 20200608
  Transmission Date: 20200714
  Serious: Yes (Hospitalization)
  Sender: FDA-Public Use
  Company Number: None

PATIENT
  Age: 46 Year
  Sex: Female
  Weight: 69 kg

DRUGS (1)
  1. TOPIRAMATE (TOPIRAMATE ) 25MG TAB) [Suspect]
     Active Substance: TOPIRAMATE
     Indication: CLUSTER HEADACHE
     Dates: start: 20190910, end: 20191210

REACTIONS (2)
  - Hypersensitivity [None]
  - Anaphylactic reaction [None]
